FAERS Safety Report 19727384 (Version 1)
Quarter: 2021Q3

REPORT INFORMATION
  Report Type: Spontaneous
  Country: DE (occurrence: DE)
  Receive Date: 20210819
  Receipt Date: 20210819
  Transmission Date: 20211014
  Serious: Yes (Hospitalization, Other)
  Sender: FDA-Public Use
  Company Number: DE-SA-2021SA271552

PATIENT
  Age: 73 Year
  Sex: Male
  Weight: 100 kg

DRUGS (5)
  1. DABIGATRAN [Concomitant]
     Active Substance: DABIGATRAN
     Indication: ATRIAL FIBRILLATION
     Dosage: 150 MG
  2. ENOXAPARIN SODIUM. [Suspect]
     Active Substance: ENOXAPARIN SODIUM
     Indication: ANTICOAGULANT THERAPY
     Dosage: 80 MG, Q12H
     Route: 058
  3. SUFENTANIL [Suspect]
     Active Substance: SUFENTANIL
  4. ROPIVACAINE. [Suspect]
     Active Substance: ROPIVACAINE HYDROCHLORIDE
  5. VANCOMYCIN [Concomitant]
     Active Substance: VANCOMYCIN
     Indication: STAPHYLOCOCCAL INFECTION
     Dosage: 1 G
     Route: 042

REACTIONS (5)
  - Hypoaesthesia [Unknown]
  - Extradural haematoma [Unknown]
  - Sepsis [Unknown]
  - Acute kidney injury [Unknown]
  - Paraplegia [Not Recovered/Not Resolved]
